FAERS Safety Report 5818437-2 (Version None)
Quarter: 2008Q3

REPORT INFORMATION
  Report Type: 
  Country: None (occurrence: None)
  Receive Date: 20080716
  Receipt Date: 20080630
  Transmission Date: 20090109
  Serious: Yes (Other)
  Sender: FDA-Public Use
  Company Number: 8033166

PATIENT
  Age: 40 Year
  Sex: Female
  Weight: 60 kg

DRUGS (3)
  1. KEPPRA [Suspect]
     Dosage: 21000 MG ONCE; PO
     Route: 048
     Dates: start: 20080528, end: 20080528
  2. LYRICA [Suspect]
     Dosage: 2100 MG ONCE; PO
     Route: 048
     Dates: start: 20080528, end: 20080528
  3. RISPERDAL [Suspect]
     Dosage: 14 MG ONCE; PO
     Route: 048
     Dates: start: 20080528, end: 20080528

REACTIONS (3)
  - ACCIDENTAL EXPOSURE [None]
  - INCORRECT DOSE ADMINISTERED [None]
  - SOMNOLENCE [None]
